FAERS Safety Report 18243850 (Version 1)
Quarter: 2020Q3

REPORT INFORMATION
  Report Type: Spontaneous
  Country: AR (occurrence: AR)
  Receive Date: 20200908
  Receipt Date: 20200908
  Transmission Date: 20201103
  Serious: Yes (Other)
  Sender: FDA-Public Use
  Company Number: NVSC2020AR236732

PATIENT
  Age: 64 Year
  Sex: Female

DRUGS (3)
  1. NAPROXEN. [Suspect]
     Active Substance: NAPROXEN
     Indication: HEADACHE
     Dosage: UNK
     Route: 065
  2. PANTOCAS [Concomitant]
     Indication: HIATUS HERNIA
     Dosage: UNK (STARTED 5 YEARS AGO)
     Route: 065
  3. AMG334 [Suspect]
     Active Substance: ERENUMAB
     Indication: MIGRAINE
     Dosage: UNK, QMO
     Route: 065
     Dates: start: 201903, end: 201908

REACTIONS (3)
  - Drug ineffective [Unknown]
  - Headache [Unknown]
  - Blood pressure increased [Unknown]
